FAERS Safety Report 9657163 (Version 1)
Quarter: 2013Q4

REPORT INFORMATION
  Report Type: Spontaneous
  Country: US (occurrence: US)
  Receive Date: 20131030
  Receipt Date: 20131030
  Transmission Date: 20140711
  Serious: Yes (Hospitalization)
  Sender: FDA-Public Use
  Company Number: US-JNJFOC-20131015826

PATIENT
  Age: 62 Year
  Sex: Male

DRUGS (10)
  1. XARELTO [Suspect]
     Indication: DEEP VEIN THROMBOSIS
     Route: 048
  2. ASPIRIN [Concomitant]
     Route: 065
  3. ALDACTONE [Concomitant]
     Route: 065
  4. METOPROLOL [Concomitant]
     Route: 065
  5. COZAAR [Concomitant]
     Route: 065
  6. DEMADEX [Concomitant]
     Route: 065
  7. ATIVAN [Concomitant]
     Route: 065
  8. ZOLOFT [Concomitant]
     Route: 065
  9. VICTOZA [Concomitant]
     Route: 065
  10. ZETIA [Concomitant]
     Route: 065

REACTIONS (1)
  - Hepatitis acute [Unknown]
